FAERS Safety Report 9142949 (Version 1)
Quarter: 2013Q1

REPORT INFORMATION
  Report Type: Spontaneous
  Country: AU (occurrence: AU)
  Receive Date: 20130306
  Receipt Date: 20130306
  Transmission Date: 20140127
  Serious: Yes (Other)
  Sender: FDA-Public Use
  Company Number: AU-PFIZER INC-2013076832

PATIENT
  Age: 18 Year
  Sex: Female

DRUGS (1)
  1. PRISTIQ [Suspect]
     Indication: MAJOR DEPRESSION
     Dosage: 50 MG, UNK
     Dates: start: 201302, end: 2013

REACTIONS (2)
  - Suicidal ideation [Unknown]
  - Depersonalisation [Unknown]
